FAERS Safety Report 5813596-X (Version None)
Quarter: 2008Q3

REPORT INFORMATION
  Report Type: 
  Country: None (occurrence: None)
  Receive Date: 20080714
  Receipt Date: 20080630
  Transmission Date: 20090109
  Serious: Yes (Hospitalization)
  Sender: FDA-Public Use
  Company Number: 2007BI014797

PATIENT
  Age: 68 Year
  Sex: Male

DRUGS (1)
  1. AVONEX [Suspect]
     Indication: MULTIPLE SCLEROSIS
     Dosage: 30 UG; QW; IM
     Route: 030
     Dates: start: 20061111

REACTIONS (8)
  - ABDOMINAL PAIN UPPER [None]
  - BOWEL MOVEMENT IRREGULARITY [None]
  - COLON CANCER [None]
  - MICTURITION DISORDER [None]
  - MOBILITY DECREASED [None]
  - PAIN [None]
  - PNEUMONIA [None]
  - RECTAL CANCER STAGE I [None]
